FAERS Safety Report 22114425 (Version 1)
Quarter: 2023Q1

REPORT INFORMATION
  Report Type: Spontaneous
  Country: DE (occurrence: DE)
  Receive Date: 20230320
  Receipt Date: 20230320
  Transmission Date: 20230418
  Serious: Yes (Life-Threatening, Other)
  Sender: FDA-Public Use
  Company Number: DE-MYLANLABS-2023M1027193

PATIENT
  Age: 80 Year
  Sex: Female

DRUGS (1)
  1. FENTANYL [Suspect]
     Active Substance: FENTANYL
     Indication: Rheumatoid arthritis
     Dosage: UNK (THREE FENTANYL PATCHES)
     Route: 062

REACTIONS (8)
  - Toxicity to various agents [Unknown]
  - Apnoea [Unknown]
  - Loss of consciousness [Unknown]
  - Miosis [Unknown]
  - Gait disturbance [Unknown]
  - Fatigue [Unknown]
  - Dehydration [Unknown]
  - Off label use [Unknown]
